FAERS Safety Report 8099236-0 (Version None)
Quarter: 2012Q1

REPORT INFORMATION
  Report Type: 
  Country: None (occurrence: None)
  Receive Date: 20120129
  Receipt Date: 20111004
  Transmission Date: 20120608
  Serious: No
  Sender: FDA-Public Use
  Company Number: US-ABBOTT-11P-163-0861268-00

PATIENT
  Sex: Female
  Weight: 74.91 kg

DRUGS (9)
  1. UNKNOWN MEDICATION [Concomitant]
     Indication: IRRITABLE BOWEL SYNDROME
  2. HUMIRA [Suspect]
     Indication: RHEUMATOID ARTHRITIS
     Dates: start: 20110902
  3. HUMIRA [Suspect]
     Indication: COLITIS ULCERATIVE
  4. SINGULAIR [Concomitant]
     Indication: HYPERSENSITIVITY
  5. PENTASA [Concomitant]
     Indication: COLITIS ULCERATIVE
  6. LO/OVRAL [Concomitant]
     Indication: CONTRACEPTION
  7. TEMAZEPAM [Concomitant]
     Indication: INSOMNIA
  8. TYLENOL PM [Concomitant]
     Indication: INSOMNIA
  9. METHYLPREDNISOLONE [Concomitant]
     Indication: RHEUMATOID ARTHRITIS

REACTIONS (2)
  - OROPHARYNGEAL PAIN [None]
  - RHINORRHOEA [None]
